FAERS Safety Report 14163242 (Version 5)
Quarter: 2019Q4

REPORT INFORMATION
  Report Type: Spontaneous
  Country: JP (occurrence: JP)
  Receive Date: 20171106
  Receipt Date: 20191122
  Transmission Date: 20200122
  Serious: Yes (Hospitalization, Other)
  Sender: FDA-Public Use
  Company Number: JP-UNITED THERAPEUTICS-UNT-2017-011568

PATIENT
  Age: 70 Year
  Sex: Female
  Weight: 43 kg

DRUGS (23)
  1. REMODULIN [Suspect]
     Active Substance: TREPROSTINIL
     Indication: PULMONARY ARTERIAL HYPERTENSION
     Dosage: UNK
     Route: 041
     Dates: start: 20141009
  2. REMODULIN [Suspect]
     Active Substance: TREPROSTINIL
     Dosage: 0.039 ?G/KG, CONTINUING
     Route: 041
  3. LUPRAC [Concomitant]
     Active Substance: TORSEMIDE
     Indication: RIGHT VENTRICULAR FAILURE
     Dosage: UNK
     Route: 048
  4. REMODULIN [Suspect]
     Active Substance: TREPROSTINIL
     Dosage: 0.029 ?G/KG, CONTINUING
     Route: 041
  5. REMODULIN [Suspect]
     Active Substance: TREPROSTINIL
     Dosage: 0.024 ?G/KG, CONTINUING
     Route: 041
  6. ALDACTONE A [Concomitant]
     Active Substance: SPIRONOLACTONE
     Indication: RIGHT VENTRICULAR FAILURE
     Dosage: UNK
     Route: 048
  7. ASPARA POTASSIUM [Concomitant]
     Active Substance: POTASSIUM ASPARTATE
     Indication: HYPOKALAEMIA
     Dosage: UNK
     Route: 048
  8. REMODULIN [Suspect]
     Active Substance: TREPROSTINIL
     Dosage: 0.062 ?G/KG, CONTINUING
     Route: 041
  9. REMODULIN [Suspect]
     Active Substance: TREPROSTINIL
     Dosage: 0.043 ?G/KG, CONTINUING
     Route: 041
  10. ADCIRCA [Concomitant]
     Active Substance: TADALAFIL
     Indication: PULMONARY ARTERIAL HYPERTENSION
     Dosage: UNK
     Route: 048
     Dates: start: 201406
  11. VOLIBRIS [Concomitant]
     Active Substance: AMBRISENTAN
     Indication: PULMONARY ARTERIAL HYPERTENSION
     Dosage: UNK
     Route: 048
     Dates: start: 201212
  12. PRAZAXA [Concomitant]
     Active Substance: DABIGATRAN ETEXILATE MESYLATE
     Indication: ATRIAL FIBRILLATION
     Dosage: UNK
     Route: 048
     Dates: start: 20141027, end: 20150106
  13. LIVALO [Concomitant]
     Active Substance: PITAVASTATIN CALCIUM
     Indication: HYPERLIPIDAEMIA
     Dosage: UNK
     Route: 048
     Dates: start: 20160524
  14. REMODULIN [Suspect]
     Active Substance: TREPROSTINIL
     Dosage: 0.025 ?G/KG, CONTINUING
     Route: 041
  15. FUROSEMIDE. [Concomitant]
     Active Substance: FUROSEMIDE
     Indication: RIGHT VENTRICULAR FAILURE
     Dosage: UNK
     Route: 048
     Dates: start: 20141023
  16. WARFARIN POTASSIUM [Concomitant]
     Active Substance: WARFARIN POTASSIUM
     Indication: PULMONARY ARTERIAL HYPERTENSION
     Dosage: UNK
     Route: 048
     Dates: start: 20141026
  17. REMODULIN [Suspect]
     Active Substance: TREPROSTINIL
     Dosage: 0.045 ?G/KG, CONTINUING
     Route: 041
  18. REMODULIN [Suspect]
     Active Substance: TREPROSTINIL
     Dosage: 0.053 ?G/KG, CONTINUING
     Route: 041
  19. GASTER [Concomitant]
     Active Substance: FAMOTIDINE
     Indication: CHRONIC GASTRITIS
     Dosage: UNK
     Route: 048
  20. FERROSTEC [Concomitant]
     Active Substance: SODIUM FERROUS CITRATE
     Indication: IRON DEFICIENCY ANAEMIA
     Dosage: UNK
     Route: 048
     Dates: start: 20170912
  21. REMODULIN [Suspect]
     Active Substance: TREPROSTINIL
     Dosage: 0.005 ?G/KG, CONTINUING
     Route: 041
  22. REMODULIN [Suspect]
     Active Substance: TREPROSTINIL
     Dosage: 0.016 ?G/KG, CONTINUING
     Route: 041
  23. REMODULIN [Suspect]
     Active Substance: TREPROSTINIL
     Dosage: 0.069 ?G/KG, CONTINUING
     Route: 041

REACTIONS (2)
  - Vascular device infection [Recovered/Resolved]
  - Staphylococcal infection [Recovering/Resolving]

NARRATIVE: CASE EVENT DATE: 201707
